FAERS Safety Report 8101277-1 (Version None)
Quarter: 2012Q1

REPORT INFORMATION
  Report Type: 
  Country: None (occurrence: None)
  Receive Date: 20120129
  Receipt Date: 20110919
  Transmission Date: 20120608
  Serious: Yes (Hospitalization, Other)
  Sender: FDA-Public Use
  Company Number: US-ABBOTT-11P-163-0856249-00

PATIENT
  Sex: Male

DRUGS (2)
  1. HUMIRA [Suspect]
     Indication: CROHN'S DISEASE
     Dosage: 80MG, FIRST HALF OF REPEATED LOADING DOSE.
     Route: 058
     Dates: start: 20090101, end: 20100101
  2. HUMIRA [Suspect]
     Dosage: TOOK 1ST TWO OF FOUR INJECTIONS
     Dates: start: 20110917

REACTIONS (5)
  - ILEAL PERFORATION [None]
  - ABDOMINAL PAIN [None]
  - INJECTION SITE PAIN [None]
  - INTESTINAL PERFORATION [None]
  - PAIN [None]
